FAERS Safety Report 24610914 (Version 1)
Quarter: 2024Q4

REPORT INFORMATION
  Report Type: Spontaneous
  Country: US (occurrence: US)
  Receive Date: 20241112
  Receipt Date: 20241112
  Transmission Date: 20250114
  Serious: No
  Sender: Kenvue
  Company Number: US-KENVUE-20241029315

PATIENT
  Age: 4 Decade
  Sex: Female

DRUGS (1)
  1. WOMENS ROGAINE UNSCENTED [Suspect]
     Active Substance: MINOXIDIL
     Indication: Alopecia
     Dosage: EVERYDAY
     Route: 061
     Dates: start: 20240717

REACTIONS (1)
  - Hair growth abnormal [Unknown]

NARRATIVE: CASE EVENT DATE: 20240101
